FAERS Safety Report 5922430-9 (Version None)
Quarter: 2008Q4

REPORT INFORMATION
  Report Type: 
  Country: None (occurrence: None)
  Receive Date: 20081010
  Receipt Date: 20080928
  Transmission Date: 20090506
  Serious: Yes (Hospitalization)
  Sender: FDA-Public Use
  Company Number: WSDF_00756

PATIENT
  Age: 65 Year
  Sex: Male

DRUGS (1)
  1. WINRHO [Suspect]
     Indication: IDIOPATHIC THROMBOCYTOPENIC PURPURA
     Dates: start: 20080926

REACTIONS (6)
  - ASTHENIA [None]
  - CHILLS [None]
  - HAEMOLYSIS [None]
  - HEADACHE [None]
  - HYPERTENSION [None]
  - PNEUMONIA [None]
